FAERS Safety Report 6232652-8 (Version None)
Quarter: 2009Q2

REPORT INFORMATION
  Report Type: 
  Country: None (occurrence: None)
  Receive Date: 20090612
  Receipt Date: 20090612
  Transmission Date: 20091009
  Serious: Yes (Hospitalization)
  Sender: FDA-Public Use
  Company Number: None

PATIENT
  Age: 60 Year
  Sex: Female
  Weight: 136 kg

DRUGS (10)
  1. LOVENOX [Suspect]
     Indication: CORONARY ARTERY DISEASE
     Dosage: 100 MG, 40 MG Q12H SQ
     Route: 058
     Dates: start: 20090210, end: 20090211
  2. HUMULIN N [Concomitant]
  3. SIMVASTATIN [Concomitant]
  4. ATENOLOL [Concomitant]
  5. NORVASC [Concomitant]
  6. NITROSTAT [Concomitant]
  7. XANAX [Concomitant]
  8. PRILOSEC OTC [Concomitant]
  9. CLONIDINE [Concomitant]
  10. BUMETANIDE [Concomitant]

REACTIONS (1)
  - HAEMORRHAGIC STROKE [None]
